FAERS Safety Report 18499118 (Version 2)
Quarter: 2020Q4

REPORT INFORMATION
  Report Type: Report from Study
  Country: US (occurrence: US)
  Receive Date: 20201113
  Receipt Date: 20201127
  Transmission Date: 20210114
  Serious: Yes (Death, Hospitalization)
  Sender: FDA-Public Use
  Company Number: US-ROCHE-2711014

PATIENT
  Age: 68 Year
  Sex: Male
  Weight: 104 kg

DRUGS (3)
  1. CISPLATIN. [Suspect]
     Active Substance: CISPLATIN
     Indication: SMALL CELL LUNG CANCER
     Dosage: ON 30/JUN/2020, HE RECEIVED MOST RECENT DOSE OF 390.4 MG ON DAY 1
     Route: 042
  2. ATEZOLIZUMAB. [Suspect]
     Active Substance: ATEZOLIZUMAB
     Indication: SMALL CELL LUNG CANCER
     Dosage: ON 01/SEP/2020, SHE RECEIVED MOST RECENT DOSE OF ATEZOLIZUMAB 1200 MG
     Route: 042
  3. ETOPOSIDE. [Suspect]
     Active Substance: ETOPOSIDE
     Indication: SMALL CELL LUNG CANCER
     Dosage: ON 02/JUL/2020, HE RECEIVED MOST RECENT DOSE OF ETOPOSIDE 1463.25 MG ON DAY 1-3
     Route: 042

REACTIONS (3)
  - Hyponatraemia [Recovered/Resolved]
  - Pneumonitis [Fatal]
  - Atrial fibrillation [Unknown]

NARRATIVE: CASE EVENT DATE: 20200917
